FAERS Safety Report 16243171 (Version 2)
Quarter: 2019Q2

REPORT INFORMATION
  Report Type: Spontaneous
  Country: US (occurrence: US)
  Receive Date: 20190426
  Receipt Date: 20190614
  Transmission Date: 20190711
  Serious: No
  Sender: FDA-Public Use
  Company Number: US-TEVA-2019-US-1040812

PATIENT
  Age: 60 Year
  Sex: Female

DRUGS (3)
  1. CLONAZEPAM SOLCO [Suspect]
     Active Substance: CLONAZEPAM
     Indication: FIBROMYALGIA
     Route: 065
  2. LIDOCAINE. [Concomitant]
     Active Substance: LIDOCAINE
     Dosage: FORM: CREAM AND JELLY
  3. CLONAZEPAM ACTAVIS [Suspect]
     Active Substance: CLONAZEPAM
     Indication: FIBROMYALGIA
     Dosage: 0.5 MG ORALLY DISINTEGRATING TABLETS
     Route: 048

REACTIONS (4)
  - Tremor [Unknown]
  - Product substitution issue [Unknown]
  - Product use in unapproved indication [Unknown]
  - Drug ineffective [Unknown]
